FAERS Safety Report 24342588 (Version 3)
Quarter: 2024Q4

REPORT INFORMATION
  Report Type: Spontaneous
  Country: RO (occurrence: RO)
  Receive Date: 20240920
  Receipt Date: 20241125
  Transmission Date: 20250114
  Serious: Yes (Hospitalization, Other)
  Sender: NOVARTIS
  Company Number: RO-002147023-NVSC2024RO187326

PATIENT
  Age: 45 Year
  Sex: Male

DRUGS (1)
  1. COSENTYX [Suspect]
     Active Substance: SECUKINUMAB
     Indication: Ankylosing spondylitis
     Dosage: 300 MG, QMO
     Route: 058
     Dates: start: 20230901, end: 20240904

REACTIONS (1)
  - Dilated cardiomyopathy [Unknown]

NARRATIVE: CASE EVENT DATE: 20240801
